FAERS Safety Report 4308039-1 (Version None)
Quarter: 2004Q1

REPORT INFORMATION
  Report Type: 
  Country: None (occurrence: None)
  Receive Date: 20040301
  Receipt Date: 20030403
  Transmission Date: 20041129
  Serious: No
  Sender: FDA-Public Use
  Company Number: US-BRISTOL-MYERS SQUIBB COMPANY-12230611

PATIENT
  Age: 80 Year
  Sex: Male
  Weight: 95 kg

DRUGS (5)
  1. METFORMIN HCL [Suspect]
     Indication: DIABETES MELLITUS
     Dosage: DURATION OF THERAPY:  ^OVER 5 YEARS^
     Route: 048
  2. GLYBURIDE [Concomitant]
  3. ACTOS [Concomitant]
  4. PROSCAR [Concomitant]
  5. HYTRIN [Concomitant]

REACTIONS (1)
  - BLOOD CREATININE INCREASED [None]
